FAERS Safety Report 9587117 (Version 2)
Quarter: 2014Q1

REPORT INFORMATION
  Report Type: Spontaneous
  Country: US (occurrence: US)
  Receive Date: 20131003
  Receipt Date: 20140311
  Transmission Date: 20141002
  Serious: No
  Sender: FDA-Public Use
  Company Number: US-009507513-1310USA001279

PATIENT
  Sex: Female

DRUGS (1)
  1. LOTRIMIN AF ATHLETE^S FOOT DEODORANT SPRAY POWDER [Suspect]
     Indication: FUNGAL INFECTION
     Dosage: UNK, UNKNOWN
     Route: 061

REACTIONS (3)
  - Pain [Unknown]
  - Burning sensation [Unknown]
  - Pain in extremity [Unknown]
